FAERS Safety Report 25047819 (Version 2)
Quarter: 2025Q1

REPORT INFORMATION
  Report Type: Report from Study
  Country: US (occurrence: US)
  Receive Date: 20250306
  Receipt Date: 20250320
  Transmission Date: 20250408
  Serious: No
  Sender: DAIICHI
  Company Number: US-DAIICHI SANKYO, INC.-DS-2025-128940-USAA

PATIENT
  Age: 46 Year
  Sex: Female

DRUGS (2)
  1. PEXIDARTINIB [Suspect]
     Active Substance: PEXIDARTINIB
     Indication: Connective tissue neoplasm
     Dosage: 250 MG, BID
     Route: 048
     Dates: start: 202502
  2. PEXIDARTINIB [Suspect]
     Active Substance: PEXIDARTINIB
     Indication: Soft tissue neoplasm

REACTIONS (13)
  - Diarrhoea [Unknown]
  - Feeling abnormal [Unknown]
  - Heart rate decreased [Unknown]
  - Abdominal pain upper [Unknown]
  - Dizziness [Unknown]
  - Nausea [Recovering/Resolving]
  - Adverse drug reaction [Recovered/Resolved]
  - Confusional state [Recovered/Resolved]
  - Disturbance in attention [Recovered/Resolved]
  - Memory impairment [Recovered/Resolved]
  - Photophobia [Recovered/Resolved]
  - Fatigue [Recovered/Resolved]
  - Liver function test increased [Recovered/Resolved]

NARRATIVE: CASE EVENT DATE: 20250301
